FAERS Safety Report 4601063-0 (Version None)
Quarter: 2005Q1

REPORT INFORMATION
  Report Type: 
  Country: None (occurrence: None)
  Receive Date: 20050308
  Receipt Date: 20050225
  Transmission Date: 20050727
  Serious: Yes (Death, Other)
  Sender: FDA-Public Use
  Company Number: IT-JNJFOC-20050203169

PATIENT

DRUGS (2)
  1. REOPRO [Suspect]
     Indication: ACUTE MYOCARDIAL INFARCTION
     Route: 042
  2. RETEPALSE [Suspect]
     Indication: ACUTE MYOCARDIAL INFARCTION
     Route: 042

REACTIONS (1)
  - HAEMORRHAGIC STROKE [None]
